FAERS Safety Report 5701213-9 (Version None)
Quarter: 2008Q2

REPORT INFORMATION
  Report Type: 
  Country: None (occurrence: None)
  Receive Date: 20080410
  Receipt Date: 20080304
  Transmission Date: 20081010
  Serious: No
  Sender: FDA-Public Use
  Company Number: US-BOEHRINGER INGELHEIM GMBH, GERMANY-2008-BP-03360BP

PATIENT
  Sex: Male

DRUGS (5)
  1. CATAPRES-TTS-1 [Suspect]
     Indication: HYPERTENSION
     Route: 061
     Dates: start: 20071201
  2. LABETALOL HCL [Concomitant]
  3. CARAFATE [Concomitant]
  4. SENSIPAR [Concomitant]
  5. DARVOCET-N 100 [Concomitant]

REACTIONS (1)
  - BLOOD PRESSURE DECREASED [None]
